FAERS Safety Report 15190761 (Version 2)
Quarter: 2018Q3

REPORT INFORMATION
  Report Type: Spontaneous
  Country: JP (occurrence: JP)
  Receive Date: 20180724
  Receipt Date: 20180727
  Transmission Date: 20181010
  Serious: Yes (Death, Life-Threatening)
  Sender: FDA-Public Use
  Company Number: JP-SA-2018SA197252

PATIENT
  Age: 69 Year
  Sex: Male

DRUGS (2)
  1. ELPLAT [Suspect]
     Active Substance: OXALIPLATIN
     Indication: COLON CANCER
     Dosage: UNK UNK, QD
     Route: 041
  2. XELODA [Suspect]
     Active Substance: CAPECITABINE
     Indication: COLON CANCER
     Dosage: UNK
     Route: 048

REACTIONS (6)
  - Blood bilirubin increased [Unknown]
  - Diarrhoea [Not Recovered/Not Resolved]
  - Decreased appetite [Not Recovered/Not Resolved]
  - Neuropathy peripheral [Unknown]
  - Malaise [Unknown]
  - Dehydration [Fatal]
